FAERS Safety Report 6003078-7 (Version None)
Quarter: 2008Q4

REPORT INFORMATION
  Report Type: 
  Country: None (occurrence: None)
  Receive Date: 20081212
  Receipt Date: 20081212
  Transmission Date: 20090506
  Serious: Yes (Other)
  Sender: FDA-Public Use
  Company Number: None

PATIENT
  Age: 53 Year
  Sex: Female
  Weight: 88.4514 kg

DRUGS (1)
  1. VENLAFAXINE HCL [Suspect]
     Indication: DRUG DISPENSING ERROR
     Dosage: PILL SAYS R/DY  1 X A DAY PO
     Route: 048
     Dates: start: 20081104, end: 20081208

REACTIONS (3)
  - DRUG DISPENSING ERROR [None]
  - MEDICATION ERROR [None]
  - WRONG DRUG ADMINISTERED [None]
